FAERS Safety Report 6314549-8 (Version None)
Quarter: 2009Q3

REPORT INFORMATION
  Report Type: 
  Country: None (occurrence: None)
  Receive Date: 20090819
  Receipt Date: 20090811
  Transmission Date: 20100115
  Serious: Yes (Hospitalization)
  Sender: FDA-Public Use
  Company Number: PHHY2009ZA33477

PATIENT
  Sex: Female

DRUGS (1)
  1. ACLASTA [Suspect]
     Dosage: UNK
     Dates: start: 20090806

REACTIONS (7)
  - BONE PAIN [None]
  - CYSTITIS [None]
  - MYALGIA [None]
  - PYREXIA [None]
  - URINARY TRACT INFECTION [None]
  - URTICARIA [None]
  - VOMITING [None]
